FAERS Safety Report 14642206 (Version 2)
Quarter: 2018Q2

REPORT INFORMATION
  Report Type: Spontaneous
  Country: US (occurrence: US)
  Receive Date: 20180315
  Receipt Date: 20180613
  Transmission Date: 20180711
  Serious: Yes (Hospitalization, Other)
  Sender: FDA-Public Use
  Company Number: US-BAYER-2018-044400

PATIENT
  Age: 25 Year
  Sex: Female

DRUGS (3)
  1. MODAFINIL. [Concomitant]
     Active Substance: MODAFINIL
     Dosage: 200 MG, OM
     Route: 048
  2. MODAFINIL. [Concomitant]
     Active Substance: MODAFINIL
  3. MIRENA [Suspect]
     Active Substance: LEVONORGESTREL
     Indication: CONTRACEPTION
     Dosage: 20 MCG/24HR, CONT
     Route: 015
     Dates: start: 20180109, end: 20180219

REACTIONS (14)
  - Septic shock [Recovered/Resolved]
  - Rash generalised [None]
  - Formication [None]
  - Sepsis [None]
  - Malaise [None]
  - Acute respiratory failure [Recovered/Resolved]
  - CT hypotension complex [None]
  - Hypotension [Recovered/Resolved]
  - Pleural effusion [Recovered/Resolved]
  - Amenorrhoea [None]
  - Pain in extremity [None]
  - Lactic acidosis [Recovered/Resolved]
  - Pyrexia [None]
  - Oedema [Recovering/Resolving]

NARRATIVE: CASE EVENT DATE: 20180219
